FAERS Safety Report 4439471-3 (Version None)
Quarter: 2004Q3

REPORT INFORMATION
  Report Type: 
  Country: None (occurrence: None)
  Receive Date: 20040728
  Receipt Date: 20040326
  Transmission Date: 20050211
  Serious: No
  Sender: FDA-Public Use
  Company Number: USA040361670

PATIENT
  Age: 13 Year
  Sex: Female
  Weight: 58 kg

DRUGS (2)
  1. STRATTERA [Suspect]
     Indication: ATTENTION DEFICIT/HYPERACTIVITY DISORDER
     Dosage: 60 MG DAY
     Dates: start: 20031201
  2. SYNTHROID [Concomitant]

REACTIONS (1)
  - BLOOD THYROID STIMULATING HORMONE [None]
